FAERS Safety Report 19362777 (Version 1)
Quarter: 2021Q2

REPORT INFORMATION
  Report Type: Spontaneous
  Country: US (occurrence: US)
  Receive Date: 20210602
  Receipt Date: 20210602
  Transmission Date: 20210717
  Serious: No
  Sender: FDA-Public Use
  Company Number: US-BAYER-2021-145010

PATIENT
  Sex: Male

DRUGS (18)
  1. DUPIXENT [Concomitant]
     Active Substance: DUPILUMAB
  2. LISINOPRIL. [Concomitant]
     Active Substance: LISINOPRIL
  3. DIPHENHYDRAMINE HYDROCHLORIDE. [Concomitant]
     Active Substance: DIPHENHYDRAMINE HYDROCHLORIDE
  4. CLARITIN [Suspect]
     Active Substance: LORATADINE
  5. ASPIRIN (CARDIO) [Suspect]
     Active Substance: ASPIRIN
  6. TRULICITY [Concomitant]
     Active Substance: DULAGLUTIDE
  7. MELATONIN [Concomitant]
     Active Substance: MELATONIN
  8. SPIRONOLACTONE. [Concomitant]
     Active Substance: SPIRONOLACTONE
  9. REPATHA [Concomitant]
     Active Substance: EVOLOCUMAB
  10. ATENOLOL. [Concomitant]
     Active Substance: ATENOLOL
  11. VITAMIN D3 [Concomitant]
     Active Substance: CHOLECALCIFEROL
  12. GABAPENTIN. [Concomitant]
     Active Substance: GABAPENTIN
  13. HYDROCHLOROTHIAZIDE. [Concomitant]
     Active Substance: HYDROCHLOROTHIAZIDE
  14. MELOXICAM. [Concomitant]
     Active Substance: MELOXICAM
  15. AMLODIPINE BESILATE [Concomitant]
     Active Substance: AMLODIPINE BESYLATE
  16. FLEXERIL [CEFIXIME] [Concomitant]
     Active Substance: CEFIXIME
  17. CULTURELLE [Concomitant]
     Active Substance: LACTOBACILLUS RHAMNOSUS
  18. ESCITALOPRAM [Concomitant]
     Active Substance: ESCITALOPRAM OXALATE

REACTIONS (1)
  - Drug interaction [Unknown]
